FAERS Safety Report 6491035-6 (Version None)
Quarter: 2009Q4

REPORT INFORMATION
  Report Type: 
  Country: None (occurrence: None)
  Receive Date: 20091211
  Receipt Date: 20091203
  Transmission Date: 20100525
  Serious: Yes (Disabling, Other)
  Sender: FDA-Public Use
  Company Number: JP-MERCK-0912USA00992

PATIENT
  Age: 77 Year
  Sex: Female

DRUGS (2)
  1. STROMECTOL [Suspect]
     Indication: ACARODERMATITIS
     Route: 048
     Dates: start: 20091009, end: 20091009
  2. IMIDOL [Concomitant]
     Indication: RESTLESSNESS
     Route: 048
     Dates: start: 20091005, end: 20091012

REACTIONS (2)
  - GENERALISED OEDEMA [None]
  - PLATELET COUNT DECREASED [None]
